FAERS Safety Report 9625579 (Version 6)
Quarter: 2016Q4

REPORT INFORMATION
  Report Type: Spontaneous
  Country: VE (occurrence: VE)
  Receive Date: 20131016
  Receipt Date: 20161024
  Transmission Date: 20170207
  Serious: Yes (Life-Threatening, Hospitalization, Other)
  Sender: FDA-Public Use
  Company Number: PHHY2013VE115077

PATIENT
  Age: 75 Year
  Sex: Male

DRUGS (20)
  1. CEDAX [Concomitant]
     Active Substance: CEFTIBUTEN DIHYDRATE
     Indication: EMPHYSEMA
     Route: 048
     Dates: start: 201310
  2. CLARIVAX [Concomitant]
     Indication: COUGH
     Dosage: 2 DF, QD
     Route: 065
  3. KLAS [Concomitant]
     Indication: EMPHYSEMA
     Route: 048
     Dates: start: 201310
  4. ADALAT [Concomitant]
     Active Substance: NIFEDIPINE
     Indication: HYPERTENSION
     Dosage: 30 MG, QD
     Route: 048
     Dates: start: 2007, end: 2007
  5. AMLODIPINE [Concomitant]
     Active Substance: AMLODIPINE BESYLATE
     Indication: HYPERTENSION
     Dosage: 10 MG, QD
     Route: 065
  6. ONBREZ BREEZHALER [Suspect]
     Active Substance: INDACATEROL
     Indication: CHRONIC OBSTRUCTIVE PULMONARY DISEASE
     Dosage: 300 UG, QD
     Route: 055
     Dates: start: 2001
  7. ONBREZ BREEZHALER [Suspect]
     Active Substance: INDACATEROL
     Dosage: 400 MG, UNK
     Route: 055
  8. FORADIL [Suspect]
     Active Substance: FORMOTEROL FUMARATE
     Indication: EMPHYSEMA
  9. PROSPAN [Concomitant]
     Active Substance: IVY EXTRACT
     Indication: EMPHYSEMA
     Route: 048
     Dates: start: 201310
  10. ONBREZ BREEZHALER [Suspect]
     Active Substance: INDACATEROL
     Indication: EMPHYSEMA
     Dosage: 600 UG, QD
     Route: 055
     Dates: start: 2014
  11. ONBREZ BREEZHALER [Suspect]
     Active Substance: INDACATEROL
     Dosage: 3 DF, QD
     Route: 055
  12. FORADIL [Suspect]
     Active Substance: FORMOTEROL FUMARATE
     Indication: OBSTRUCTIVE AIRWAYS DISORDER
  13. KLARICID [Concomitant]
     Active Substance: CLARITHROMYCIN
     Indication: EMPHYSEMA
     Route: 048
     Dates: start: 201310
  14. MIFLONIDE [Suspect]
     Active Substance: BUDESONIDE
     Indication: OBSTRUCTIVE AIRWAYS DISORDER
     Dosage: 800 UG, UNK
     Route: 055
  15. COZAAR [Concomitant]
     Active Substance: LOSARTAN POTASSIUM
     Indication: HYPERTENSION
     Dosage: 50 MG, QD
     Route: 048
     Dates: start: 2007, end: 2007
  16. FORADIL [Suspect]
     Active Substance: FORMOTEROL FUMARATE
     Indication: CHRONIC OBSTRUCTIVE PULMONARY DISEASE
     Dosage: 24 UG, QD
     Route: 055
     Dates: start: 2004
  17. MIFLONIDE [Suspect]
     Active Substance: BUDESONIDE
     Indication: CHRONIC OBSTRUCTIVE PULMONARY DISEASE
     Dosage: 800 UG, QD
     Route: 055
     Dates: start: 2004, end: 2012
  18. MADOPAR [Concomitant]
     Active Substance: BENSERAZIDE HYDROCHLORIDE\LEVODOPA
     Indication: PARKINSON^S DISEASE
     Dosage: 150 MG, QD
     Route: 065
     Dates: start: 2011
  19. LEVOPRONT [Concomitant]
     Indication: EMPHYSEMA
     Route: 048
     Dates: start: 201310
  20. MIFLONIDE [Suspect]
     Active Substance: BUDESONIDE
     Indication: EMPHYSEMA
     Dosage: UNK, TID
     Route: 055

REACTIONS (28)
  - Pneumonia [Recovered/Resolved]
  - General physical health deterioration [Not Recovered/Not Resolved]
  - Drug ineffective [Not Recovered/Not Resolved]
  - Apparent death [Unknown]
  - Chills [Recovered/Resolved]
  - Pulmonary function test decreased [Not Recovered/Not Resolved]
  - Inspiratory capacity decreased [Not Recovered/Not Resolved]
  - Blood pressure abnormal [Recovered/Resolved]
  - Chest discomfort [Recovered/Resolved]
  - Emphysema [Not Recovered/Not Resolved]
  - Chest discomfort [Not Recovered/Not Resolved]
  - Dizziness [Recovered/Resolved]
  - Fatigue [Recovered/Resolved]
  - Lung disorder [Not Recovered/Not Resolved]
  - Cardiovascular symptom [Not Recovered/Not Resolved]
  - Feeling abnormal [Recovered/Resolved]
  - Dermatitis [Not Recovered/Not Resolved]
  - Asphyxia [Unknown]
  - Anxiety [Unknown]
  - Malaise [Not Recovered/Not Resolved]
  - Chest pain [Recovered/Resolved]
  - Feeling abnormal [Recovered/Resolved]
  - Influenza [Unknown]
  - Dyspnoea [Not Recovered/Not Resolved]
  - Pneumonia [Recovered/Resolved]
  - Condition aggravated [Not Recovered/Not Resolved]
  - Weight decreased [Not Recovered/Not Resolved]
  - Product quality issue [Unknown]

NARRATIVE: CASE EVENT DATE: 2011
